FAERS Safety Report 8538887-3 (Version None)
Quarter: 2012Q3

REPORT INFORMATION
  Report Type: 
  Country: None (occurrence: None)
  Receive Date: 20120726
  Receipt Date: 20120724
  Transmission Date: 20120928
  Serious: Yes (Other)
  Sender: FDA-Public Use
  Company Number: JP-PFIZER INC-2012149264

PATIENT
  Age: 82 Year
  Sex: Female

DRUGS (1)
  1. EPIRUBICIN HYDROCHLORIDE [Suspect]
     Indication: BREAST CANCER
     Dosage: UNK
     Route: 042

REACTIONS (2)
  - INJECTION SITE EXTRAVASATION [None]
  - SKIN ULCER [None]
